FAERS Safety Report 5597052-2 (Version None)
Quarter: 2007Q4

REPORT INFORMATION
  Report Type: 
  Country: None (occurrence: None)
  Receive Date: 20071221
  Receipt Date: 20071018
  Transmission Date: 20080405
  Serious: No
  Sender: FDA-Public Use
  Company Number: SPV1-2007-04618

PATIENT

DRUGS (1)
  1. VYVANSE [Suspect]
     Dosage: 70 MG

REACTIONS (1)
  - RASH [None]
